FAERS Safety Report 12832781 (Version 1)
Quarter: 2016Q4

REPORT INFORMATION
  Report Type: Spontaneous
  Country: US (occurrence: US)
  Receive Date: 20161010
  Receipt Date: 20161010
  Transmission Date: 20170207
  Serious: No
  Sender: FDA-Public Use
  Company Number: US-PFM-US-2016-2437

PATIENT
  Age: 13 Month
  Sex: Male

DRUGS (3)
  1. RANITIDINE. [Concomitant]
     Active Substance: RANITIDINE
     Indication: GASTROOESOPHAGEAL REFLUX DISEASE
  2. HEMANGEOL [Suspect]
     Active Substance: PROPRANOLOL HYDROCHLORIDE
     Indication: INFANTILE HAEMANGIOMA
     Dosage: 1 ML, BID (2/DAY)
     Route: 048
     Dates: start: 20160415, end: 20160725
  3. HEMANGEOL [Suspect]
     Active Substance: PROPRANOLOL HYDROCHLORIDE
     Dosage: 0.5 ML, BID (2/DAY)
     Route: 048
     Dates: start: 20160726, end: 20160807

REACTIONS (4)
  - Constipation [Recovered/Resolved]
  - Drug administered to patient of inappropriate age [Recovered/Resolved]
  - Hypoglycaemia [Recovered/Resolved]
  - Off label use [Recovered/Resolved]

NARRATIVE: CASE EVENT DATE: 2016
